FAERS Safety Report 14273084 (Version 1)
Quarter: 2017Q4

REPORT INFORMATION
  Report Type: Spontaneous
  Country: PL (occurrence: PL)
  Receive Date: 20171211
  Receipt Date: 20171211
  Transmission Date: 20180321
  Serious: Yes (Disabling, Other)
  Sender: FDA-Public Use
  Company Number: PL-OTSUKA-DJ201308390

PATIENT
  Age: 52 Year
  Sex: Male

DRUGS (10)
  1. PYGEUM AFRICANUM [Concomitant]
     Indication: BENIGN PROSTATIC HYPERPLASIA
  2. CIPROFLOXACIN. [Suspect]
     Active Substance: CIPROFLOXACIN
     Indication: BENIGN PROSTATIC HYPERPLASIA
     Dosage: 1 DF, 1DF=1 UNIT NOS
     Route: 048
     Dates: start: 20130529, end: 20130607
  3. FLUANXOL DEPOT [Suspect]
     Active Substance: FLUPENTIXOL DECANOATE
     Indication: SCHIZOPHRENIA
     Dosage: SOLUTION, 1.5MG,AMP,0.02 EVERY 2WKS,LAST DOSE:20MAY13
     Route: 030
     Dates: start: 2011
  4. PYGEUM AFRICANUM [Concomitant]
     Indication: PROSTATIC SPECIFIC ANTIGEN
  5. ABILIFY [Suspect]
     Active Substance: ARIPIPRAZOLE
     Indication: SCHIZOPHRENIA
     Dosage: 7.5 MG, UNK
     Route: 048
     Dates: start: 20130519
  6. CIPROFLOXACIN. [Suspect]
     Active Substance: CIPROFLOXACIN
     Indication: PROSTATIC SPECIFIC ANTIGEN
  7. PYGEUM AFRICANUM [Concomitant]
     Indication: PRODUCT USED FOR UNKNOWN INDICATION
     Dosage: UNK
     Route: 065
     Dates: start: 20130519
  8. FLUPENTIXOL [Suspect]
     Active Substance: FLUPENTIXOL
     Indication: SCHIZOPHRENIA
     Dosage: SOLUTION, 1.5MG,AMP,0.02 EVERY 2WKS,LAST DOSE:20MAY13
     Route: 030
     Dates: start: 2011
  9. OMEGA-3 TRIGLYCERIDES [Concomitant]
     Indication: PRODUCT USED FOR UNKNOWN INDICATION
     Dosage: UNK
     Route: 065
     Dates: start: 20130519
  10. OMEGA-3 TRIGLYCERIDES [Concomitant]
     Indication: HYPERCHOLESTEROLAEMIA

REACTIONS (5)
  - Premature ejaculation [Not Recovered/Not Resolved]
  - Erectile dysfunction [Not Recovered/Not Resolved]
  - Off label use [Unknown]
  - Myalgia [Not Recovered/Not Resolved]
  - Insomnia [Not Recovered/Not Resolved]

NARRATIVE: CASE EVENT DATE: 201305
